FAERS Safety Report 21137267 (Version 5)
Quarter: 2022Q3

REPORT INFORMATION
  Report Type: Spontaneous
  Country: CA (occurrence: CA)
  Receive Date: 20220727
  Receipt Date: 20220916
  Transmission Date: 20221027
  Serious: Yes (Life-Threatening, Other)
  Sender: FDA-Public Use
  Company Number: CA-BEH-2022147966

PATIENT
  Age: 76 Year
  Sex: Male
  Weight: 70 kg

DRUGS (14)
  1. ALBUREX [Suspect]
     Active Substance: ALBUMIN HUMAN
     Indication: Postoperative care
     Dosage: UNK, 4 19-JUL/4 20-JUL, 4 VIALS
     Route: 042
     Dates: start: 20220719, end: 20220720
  2. ALBUREX [Suspect]
     Active Substance: ALBUMIN HUMAN
     Indication: Intraoperative care
  3. FIBRINOGEN [Concomitant]
     Active Substance: FIBRINOGEN HUMAN
     Dosage: 4 GRAM
     Dates: start: 20220719
  4. COAGULATION FACTOR VIIA RECOMBINANT HUMAN [Concomitant]
     Active Substance: COAGULATION FACTOR VIIA RECOMBINANT HUMAN
     Dosage: 4 GRAM
     Dates: start: 20220719
  5. HUMAN RED BLOOD CELL [Concomitant]
     Active Substance: HUMAN RED BLOOD CELL
     Dosage: UNK
     Dates: start: 20220719
  6. HUMAN RED BLOOD CELL [Concomitant]
     Active Substance: HUMAN RED BLOOD CELL
     Dosage: UNK
     Dates: start: 20220719
  7. HUMAN RED BLOOD CELL [Concomitant]
     Active Substance: HUMAN RED BLOOD CELL
     Dosage: UNK
     Dates: start: 20220719
  8. HUMAN RED BLOOD CELL [Concomitant]
     Active Substance: HUMAN RED BLOOD CELL
     Dosage: UNK
     Dates: start: 20220719
  9. PLATELETS [Concomitant]
     Active Substance: HUMAN PLATELET, ALLOGENIC
     Dosage: UNK
     Dates: start: 20220719
  10. PLATELETS [Concomitant]
     Active Substance: HUMAN PLATELET, ALLOGENIC
     Dosage: UNK
     Dates: start: 20220719
  11. HUMAN PLASMA [Concomitant]
     Active Substance: HUMAN PLASMA
     Dosage: 500 MILLILITER
     Dates: start: 20220719
  12. HUMAN PLASMA [Concomitant]
     Active Substance: HUMAN PLASMA
     Dosage: 500 MILLILITER
     Dates: start: 20220719
  13. HUMAN PLASMA [Concomitant]
     Active Substance: HUMAN PLASMA
     Dosage: 500 MILLILITER
     Dates: start: 20220719
  14. HUMAN PLASMA [Concomitant]
     Active Substance: HUMAN PLASMA
     Dosage: 500 MILLILITER
     Dates: start: 20220719

REACTIONS (3)
  - Transfusion-related acute lung injury [Recovering/Resolving]
  - Product quality issue [Recovering/Resolving]
  - Hypoxia [Recovering/Resolving]

NARRATIVE: CASE EVENT DATE: 20220720
